APPROVED DRUG PRODUCT: METHOCARBAMOL
Active Ingredient: METHOCARBAMOL
Strength: 750MG
Dosage Form/Route: TABLET;ORAL
Application: A089418 | Product #001
Applicant: AMERICAN THERAPEUTICS INC
Approved: Feb 11, 1987 | RLD: No | RS: No | Type: DISCN